FAERS Safety Report 12994230 (Version 1)
Quarter: 2016Q4

REPORT INFORMATION
  Report Type: Spontaneous
  Country: DE (occurrence: DE)
  Receive Date: 20161202
  Receipt Date: 20161202
  Transmission Date: 20170207
  Serious: Yes (Other)
  Sender: FDA-Public Use
  Company Number: DE-TEVA-714632GER

PATIENT
  Age: 80 Year
  Sex: Female

DRUGS (15)
  1. LORAZEPAM. [Suspect]
     Active Substance: LORAZEPAM
     Dosage: .5 MILLIGRAM DAILY;
     Route: 048
     Dates: start: 20160301, end: 20160318
  2. RISPERDAL [Suspect]
     Active Substance: RISPERIDONE
     Dosage: 1.5 MILLIGRAM DAILY;
     Route: 048
     Dates: start: 20160223, end: 20160229
  3. ADENURIC [Concomitant]
     Active Substance: FEBUXOSTAT
     Dosage: 80 MILLIGRAM DAILY;
     Route: 048
     Dates: start: 20160305
  4. LORAZEPAM. [Suspect]
     Active Substance: LORAZEPAM
     Dosage: .75 MILLIGRAM DAILY;
     Route: 048
     Dates: start: 20160221, end: 20160229
  5. TORASEMID [Concomitant]
     Active Substance: TORSEMIDE
     Dosage: 10 MILLIGRAM DAILY;
     Route: 048
  6. RISPERDAL [Suspect]
     Active Substance: RISPERIDONE
     Dosage: 1.5 MILLIGRAM DAILY;
     Route: 048
     Dates: start: 20160322, end: 20160408
  7. HCT [Concomitant]
     Active Substance: HYDROCHLOROTHIAZIDE
     Dosage: 12.5 MILLIGRAM DAILY;
     Route: 048
  8. LORAZEPAM. [Suspect]
     Active Substance: LORAZEPAM
     Dosage: 1 MILLIGRAM DAILY;
     Route: 048
     Dates: start: 20160209, end: 20160220
  9. VALSARTAN. [Concomitant]
     Active Substance: VALSARTAN
     Dosage: 80 MILLIGRAM DAILY;
     Route: 048
  10. METFORMIN [Concomitant]
     Active Substance: METFORMIN HYDROCHLORIDE
     Dosage: 1000 MILLIGRAM DAILY;
     Route: 048
  11. L-THYROXIN [Concomitant]
     Active Substance: LEVOTHYROXINE SODIUM
     Dosage: 50 MICROGRAM DAILY;
     Route: 048
  12. LORAZEPAM. [Suspect]
     Active Substance: LORAZEPAM
     Dosage: 2 MILLIGRAM DAILY;
     Route: 048
     Dates: start: 20160131, end: 20160208
  13. RISPERDAL [Suspect]
     Active Substance: RISPERIDONE
     Dosage: 1 MILLIGRAM DAILY;
     Route: 048
     Dates: start: 20160208, end: 20160222
  14. RISPERDAL [Suspect]
     Active Substance: RISPERIDONE
     Dosage: 1 MILLIGRAM DAILY;
     Route: 048
     Dates: start: 20160301, end: 20160321
  15. SERTRALINE [Concomitant]
     Active Substance: SERTRALINE HYDROCHLORIDE
     Dosage: 50 MILLIGRAM DAILY;
     Route: 048
     Dates: start: 20160210, end: 20160408

REACTIONS (1)
  - Pneumonia [Recovered/Resolved]

NARRATIVE: CASE EVENT DATE: 20160308
